FAERS Safety Report 11137347 (Version 1)
Quarter: 2015Q2

REPORT INFORMATION
  Report Type: Report from Study
  Country: BR (occurrence: BR)
  Receive Date: 20150526
  Receipt Date: 20150526
  Transmission Date: 20150821
  Serious: Yes (Other)
  Sender: FDA-Public Use
  Company Number: BR-ABBVIE-15K-020-1394630-00

PATIENT
  Age: 19 Year
  Sex: Female
  Weight: 45 kg

DRUGS (2)
  1. VIMOVO [Concomitant]
     Active Substance: ESOMEPRAZOLE MAGNESIUM\NAPROXEN
     Indication: ANKYLOSING SPONDYLITIS
     Route: 048
     Dates: start: 20150511
  2. HUMIRA [Suspect]
     Active Substance: ADALIMUMAB
     Indication: ANKYLOSING SPONDYLITIS
     Route: 058
     Dates: start: 20141103, end: 20150319

REACTIONS (10)
  - Pathergy reaction [Unknown]
  - Genital ulceration [Recovered/Resolved]
  - Immunodeficiency [Recovering/Resolving]
  - Lymphoproliferative disorder [Unknown]
  - Behcet^s syndrome [Unknown]
  - Arthritis reactive [Unknown]
  - Diarrhoea [Recovered/Resolved]
  - Lymphocytosis [Unknown]
  - Oral herpes [Recovered/Resolved]
  - Rash macular [Recovering/Resolving]

NARRATIVE: CASE EVENT DATE: 201503
